FAERS Safety Report 12945588 (Version 2)
Quarter: 2017Q1

REPORT INFORMATION
  Report Type: Spontaneous
  Country: US (occurrence: US)
  Receive Date: 20161116
  Receipt Date: 20170227
  Transmission Date: 20170428
  Serious: No
  Sender: FDA-Public Use
  Company Number: US-BIOGEN-2016BI00316889

PATIENT
  Sex: Male

DRUGS (2)
  1. PLEGRIDY [Suspect]
     Active Substance: PEGINTERFERON BETA-1A
     Indication: PRODUCT USED FOR UNKNOWN INDICATION
     Route: 065
  2. AMPYRA [Concomitant]
     Active Substance: DALFAMPRIDINE
     Indication: GAIT DISTURBANCE
     Route: 048
     Dates: start: 20150713

REACTIONS (7)
  - Injection site erythema [Recovered/Resolved]
  - Gait disturbance [Unknown]
  - Diarrhoea [Unknown]
  - Poor quality sleep [Unknown]
  - Injection site dryness [Recovered/Resolved]
  - Fatigue [Not Recovered/Not Resolved]
  - Injection site exfoliation [Recovered/Resolved]
